FAERS Safety Report 9377744 (Version 1)
Quarter: 2013Q3

REPORT INFORMATION
  Report Type: Spontaneous
  Country: FR (occurrence: FR)
  Receive Date: 20130701
  Receipt Date: 20130701
  Transmission Date: 20140515
  Serious: Yes (Hospitalization)
  Sender: FDA-Public Use
  Company Number: FR-PFIZER INC-2013188300

PATIENT
  Age: 79 Year
  Sex: Male

DRUGS (6)
  1. ZYVOXID [Suspect]
     Indication: DERMO-HYPODERMITIS
     Dosage: 600 MG, 2X/DAY
     Route: 048
     Dates: start: 20130507, end: 20130521
  2. ROCEPHINE [Suspect]
     Indication: DERMO-HYPODERMITIS
     Dosage: 1 G, DAILY
     Route: 058
     Dates: start: 20130507, end: 20130521
  3. TOPALGIC [Concomitant]
     Dosage: 100 MG, 2X/DAY
  4. CRESTOR [Concomitant]
     Dosage: 20 MG, DAILY
  5. COAPROVEL [Concomitant]
     Dosage: HYDROCHLOROTHIAZIDE 12.5 MG,IBERSARTAN 150 MG, TWICE A DAY
  6. PYOSTACINE [Concomitant]
     Indication: DERMO-HYPODERMITIS
     Dosage: UNK
     Dates: start: 20130421, end: 20130507

REACTIONS (5)
  - Erythema [Recovered/Resolved]
  - Oedema peripheral [Recovered/Resolved]
  - Thrombocytopenia [Recovered/Resolved]
  - Leukopenia [Recovered/Resolved]
  - Renal failure acute [Recovered/Resolved]
